FAERS Safety Report 6146967-5 (Version None)
Quarter: 2009Q2

REPORT INFORMATION
  Report Type: 
  Country: None (occurrence: None)
  Receive Date: 20090407
  Receipt Date: 20090331
  Transmission Date: 20091009
  Serious: Yes (Death)
  Sender: FDA-Public Use
  Company Number: US-CELGENEUS-163-20785-09020413

PATIENT
  Sex: Female

DRUGS (2)
  1. THALOMID [Suspect]
     Route: 048
     Dates: start: 20080103, end: 20081201
  2. THALOMID [Suspect]
     Route: 048
     Dates: start: 20050921, end: 20060501

REACTIONS (1)
  - HEAD AND NECK CANCER [None]
